FAERS Safety Report 15858050 (Version 1)
Quarter: 2019Q1

REPORT INFORMATION
  Report Type: Report from Study
  Country: BR (occurrence: BR)
  Receive Date: 20190123
  Receipt Date: 20190123
  Transmission Date: 20190417
  Serious: Yes (Other)
  Sender: FDA-Public Use
  Company Number: BR-JNJFOC-20171017387

PATIENT
  Sex: Female
  Weight: 54 kg

DRUGS (10)
  1. SIMPONI [Suspect]
     Active Substance: GOLIMUMAB
     Indication: RHEUMATOID ARTHRITIS
     Route: 058
     Dates: start: 20160213
  2. RIVOTRIL [Concomitant]
     Active Substance: CLONAZEPAM
     Route: 065
  3. ATENOLOL. [Concomitant]
     Active Substance: ATENOLOL
     Route: 065
  4. ATORVASTATIN [Concomitant]
     Active Substance: ATORVASTATIN
     Route: 065
  5. PREDNISONE. [Concomitant]
     Active Substance: PREDNISONE
  6. ENALAPRIL [Concomitant]
     Active Substance: ENALAPRIL
     Route: 065
  7. SIMPONI [Suspect]
     Active Substance: GOLIMUMAB
     Indication: RHEUMATOID ARTHRITIS
     Route: 058
     Dates: start: 20161223
  8. SERTRALINE [Concomitant]
     Active Substance: SERTRALINE HYDROCHLORIDE
     Route: 065
  9. AAS [Concomitant]
     Active Substance: ASPIRIN
     Route: 065
  10. ACITRETIN. [Concomitant]
     Active Substance: ACITRETIN

REACTIONS (7)
  - Diverticulitis [Recovered/Resolved]
  - Injury [Unknown]
  - Dyspnoea [Unknown]
  - Fall [Unknown]
  - Fatigue [Unknown]
  - Crohn^s disease [Recovered/Resolved]
  - Rash pruritic [Not Recovered/Not Resolved]

NARRATIVE: CASE EVENT DATE: 2016
